FAERS Safety Report 5334708-0 (Version None)
Quarter: 2007Q2

REPORT INFORMATION
  Report Type: 
  Country: None (occurrence: None)
  Receive Date: 20070521
  Receipt Date: 20070504
  Transmission Date: 20071010
  Serious: Yes (Death, Hospitalization)
  Sender: FDA-Public Use
  Company Number: 2007RR-07425

PATIENT
  Age: 59 Year
  Sex: Male

DRUGS (9)
  1. SIMVASTATIN [Suspect]
     Indication: HYPERLIPIDAEMIA
     Dosage: 20 MG, QD
     Dates: end: 20050701
  2. PREDNISOLONE [Concomitant]
  3. IMMUNE GLOBULIN INTRAVENOUS (HUMAN) [Concomitant]
  4. METHOTREXATE SODIUM [Concomitant]
  5. UBIDECARENONE [Concomitant]
  6. METOPROLOL SUCCINATE EXTENDED RELEASE [Concomitant]
  7. LISINOPRIL [Concomitant]
  8. ASPIRIN [Concomitant]
  9. COENZYME Q [Concomitant]

REACTIONS (28)
  - AREFLEXIA [None]
  - BLOOD PRESSURE INCREASED [None]
  - BRONCHOPNEUMONIA [None]
  - CORONARY ARTERY OCCLUSION [None]
  - CULTURE URINE POSITIVE [None]
  - CYTOMEGALOVIRUS INFECTION [None]
  - DYSARTHRIA [None]
  - DYSPHAGIA [None]
  - DYSPNOEA [None]
  - ENTEROCOCCAL INFECTION [None]
  - GASTRITIS [None]
  - HAEMODIALYSIS [None]
  - HEPATIC HAEMORRHAGE [None]
  - HEPATIC NECROSIS [None]
  - LUNG ABSCESS [None]
  - MUSCULAR WEAKNESS [None]
  - MUSCULOSKELETAL DISORDER [None]
  - MYOCARDIAL INFARCTION [None]
  - MYOPATHY [None]
  - PULMONARY OEDEMA [None]
  - RENAL TUBULAR NECROSIS [None]
  - RESPIRATORY ACIDOSIS [None]
  - STAPHYLOCOCCAL INFECTION [None]
  - THROMBOSIS [None]
  - TREMOR [None]
  - URINE OUTPUT DECREASED [None]
  - UTERINE FIBROSIS [None]
  - WEIGHT INCREASED [None]
